FAERS Safety Report 8434212-7 (Version None)
Quarter: 2012Q2

REPORT INFORMATION
  Report Type: 
  Country: None (occurrence: None)
  Receive Date: 20120613
  Receipt Date: 20120608
  Transmission Date: 20120825
  Serious: Yes (Hospitalization)
  Sender: FDA-Public Use
  Company Number: PHHY2012KR049378

PATIENT
  Age: 63 Year
  Sex: Female

DRUGS (5)
  1. ALFACALCIDOL [Concomitant]
     Dosage: 0.5 UG, PER DAY
  2. ALENDRONATE SODIUM [Suspect]
     Indication: OSTEOPOROSIS
     Dosage: 70 MG, QW
     Dates: start: 20010101
  3. RISEDRONATE SODIUM [Suspect]
     Indication: OSTEOPOROSIS
     Dosage: 35 MG, QW
  4. CALCIUM CITRATE [Concomitant]
     Dosage: 1900 MG, PER DAY
  5. CALCITRIOL [Concomitant]
     Dosage: 0.25 UG, PER DAY

REACTIONS (6)
  - KYPHOSIS [None]
  - STRESS FRACTURE [None]
  - DRUG INEFFECTIVE [None]
  - GAIT DISTURBANCE [None]
  - TENDERNESS [None]
  - PAIN IN EXTREMITY [None]
